FAERS Safety Report 11056966 (Version 1)
Quarter: 2015Q2

REPORT INFORMATION
  Report Type: Spontaneous
  Country: CA (occurrence: CA)
  Receive Date: 20150422
  Receipt Date: 20150422
  Transmission Date: 20150821
  Serious: Yes (Other)
  Sender: FDA-Public Use
  Company Number: CA-ASTRAZENECA-2015SE35281

PATIENT
  Age: 27 Year
  Sex: Female

DRUGS (20)
  1. BIOTIN [Concomitant]
     Active Substance: BIOTIN
  2. FOLIC ACID. [Concomitant]
     Active Substance: FOLIC ACID
  3. MAGNESIUM [Concomitant]
     Active Substance: MAGNESIUM
  4. MOLYBDENUM [Concomitant]
     Active Substance: MOLYBDENUM
  5. ATACAND PLUS [Suspect]
     Active Substance: CANDESARTAN CILEXETIL\HYDROCHLOROTHIAZIDE
     Indication: PRODUCT USED FOR UNKNOWN INDICATION
     Route: 048
  6. IRON [Concomitant]
     Active Substance: IRON
  7. RIBOFLAVIN [Concomitant]
     Active Substance: RIBOFLAVIN
  8. VITAMIN B12 [Concomitant]
     Active Substance: CYANOCOBALAMIN
  9. MICARDIS PLUS [Suspect]
     Active Substance: HYDROCHLOROTHIAZIDE\TELMISARTAN
     Indication: PRODUCT USED FOR UNKNOWN INDICATION
     Route: 048
  10. CHROMIUM [Concomitant]
     Active Substance: CHROMIC CHLORIDE\CHROMIUM
  11. VITAMIN A [Concomitant]
     Active Substance: VITAMIN A
  12. VITAMIN C [Concomitant]
     Active Substance: ASCORBIC ACID
  13. ERGOCALCIFEROL. [Concomitant]
     Active Substance: ERGOCALCIFEROL
  14. IODINE [Concomitant]
     Active Substance: IODINE
  15. PYRIDOXINE HYDROCHLORIDE. [Concomitant]
     Active Substance: PYRIDOXINE HYDROCHLORIDE
  16. D-ALPHATOCOPHERYL ACETATE [Concomitant]
  17. NICOTINAMIDE [Concomitant]
     Active Substance: NIACINAMIDE
  18. THIAMINE HYDROCHLORIDE. [Concomitant]
     Active Substance: THIAMINE HYDROCHLORIDE
  19. COPPER [Concomitant]
     Active Substance: COPPER
  20. MANGANESE [Concomitant]
     Active Substance: MANGANESE\MANGANESE CHLORIDE

REACTIONS (3)
  - Oligohydramnios [Recovered/Resolved]
  - Premature delivery [Recovered/Resolved]
  - Exposure during pregnancy [Unknown]
